FAERS Safety Report 4786747-6 (Version None)
Quarter: 2005Q3

REPORT INFORMATION
  Report Type: 
  Country: None (occurrence: None)
  Receive Date: 20050930
  Receipt Date: 20050921
  Transmission Date: 20060218
  Serious: Yes (Other)
  Sender: FDA-Public Use
  Company Number: 2005132544

PATIENT
  Age: 70 Year
  Sex: Male
  Weight: 97.977 kg

DRUGS (4)
  1. VIAGRA [Suspect]
     Indication: ERECTILE DYSFUNCTION
     Dosage: (50 MG, AS NECESSARY), ORAL
     Route: 048
     Dates: start: 19950101, end: 20050601
  2. ALPHAGAN [Concomitant]
  3. OCUVITE (ASCORBIC ACID, RETINOL, TOCOPHEROL) [Concomitant]
  4. TOPROL (METOPROLOL) [Concomitant]

REACTIONS (4)
  - BLINDNESS TRANSIENT [None]
  - CYANOPSIA [None]
  - MACULAR DEGENERATION [None]
  - RETINAL DETACHMENT [None]
